FAERS Safety Report 11319542 (Version 1)
Quarter: 2015Q3

REPORT INFORMATION
  Report Type: Spontaneous
  Country: US (occurrence: None)
  Receive Date: 20150728
  Receipt Date: 20150728
  Transmission Date: 20151125
  Serious: Yes (Hospitalization)
  Sender: FDA-Public Use
  Company Number: None

PATIENT
  Age: 64 Year
  Sex: Male
  Weight: 92.3 kg

DRUGS (1)
  1. LITHIUM. [Suspect]
     Active Substance: LITHIUM
     Indication: BIPOLAR DISORDER
     Route: 048
     Dates: start: 20100303, end: 20150322

REACTIONS (7)
  - Tremor [None]
  - Hallucination, visual [None]
  - Acute kidney injury [None]
  - Hypophagia [None]
  - Nausea [None]
  - Toxicity to various agents [None]
  - Vomiting [None]

NARRATIVE: CASE EVENT DATE: 20150322
